FAERS Safety Report 24959541 (Version 1)
Quarter: 2025Q1

REPORT INFORMATION
  Report Type: Spontaneous
  Country: GB (occurrence: GB)
  Receive Date: 20250212
  Receipt Date: 20250212
  Transmission Date: 20250408
  Serious: Yes (Other)
  Sender: ACCORD
  Company Number: None

PATIENT
  Age: 67 Year
  Sex: Female
  Weight: 70 kg

DRUGS (5)
  1. TRAZODONE HYDROCHLORIDE [Suspect]
     Active Substance: TRAZODONE HYDROCHLORIDE
     Indication: Product used for unknown indication
     Dosage: AT NIGHT
     Dates: start: 20250107
  2. MIRTAZAPINE [Concomitant]
     Active Substance: MIRTAZAPINE
     Dosage: AT NIGHT
     Dates: start: 20250130
  3. ATENOLOL [Concomitant]
     Active Substance: ATENOLOL
     Dates: start: 20230706
  4. DONEPEZIL HYDROCHLORIDE [Concomitant]
     Active Substance: DONEPEZIL HYDROCHLORIDE
     Dates: start: 20230706
  5. FELODIPINE [Concomitant]
     Active Substance: FELODIPINE
     Dates: start: 20230706

REACTIONS (2)
  - Joint swelling [Recovered/Resolved]
  - Peripheral swelling [Recovered/Resolved]
